FAERS Safety Report 7648095-6 (Version None)
Quarter: 2011Q3

REPORT INFORMATION
  Report Type: 
  Country: None (occurrence: None)
  Receive Date: 20110801
  Receipt Date: 20110726
  Transmission Date: 20111222
  Serious: Yes (Hospitalization)
  Sender: FDA-Public Use
  Company Number: JP-CEPHALON-2011004011

PATIENT
  Age: 78 Year
  Sex: Female

DRUGS (3)
  1. BENDAMUSTINE HCL [Suspect]
     Route: 042
  2. BENDAMUSTINE HCL [Suspect]
     Route: 042
  3. BENDAMUSTINE HCL [Suspect]
     Indication: MANTLE CELL LYMPHOMA
     Route: 042
     Dates: start: 20110512, end: 20110513

REACTIONS (1)
  - INTERSTITIAL LUNG DISEASE [None]
